FAERS Safety Report 7009297-5 (Version None)
Quarter: 2010Q3

REPORT INFORMATION
  Report Type: 
  Country: None (occurrence: None)
  Receive Date: 20100923
  Receipt Date: 20100920
  Transmission Date: 20110219
  Serious: Yes (Life-Threatening, Hospitalization, Other)
  Sender: FDA-Public Use
  Company Number: IL-NOVOPROD-315056

PATIENT
  Age: 70 Year
  Sex: Male
  Weight: 112 kg

DRUGS (3)
  1. VICTOZA [Suspect]
     Indication: TYPE 2 DIABETES MELLITUS
     Dosage: 0.6 MG, QD
     Dates: start: 20100913, end: 20100913
  2. GLUCOPHAGE [Concomitant]
  3. GLIBETIC                           /00145301/ [Suspect]

REACTIONS (1)
  - MYOCARDIAL INFARCTION [None]
